FAERS Safety Report 11618980 (Version 12)
Quarter: 2016Q4

REPORT INFORMATION
  Report Type: Report from Study
  Country: CA (occurrence: CA)
  Receive Date: 20151012
  Receipt Date: 20161222
  Transmission Date: 20170206
  Serious: Yes (Death, Hospitalization, Other)
  Sender: FDA-Public Use
  Company Number: PHHY2015CA040258

PATIENT
  Age: 73 Year
  Sex: Female

DRUGS (3)
  1. SANDOSTATIN [Suspect]
     Active Substance: OCTREOTIDE ACETATE
     Indication: GASTROINTESTINAL VASCULAR MALFORMATION
     Dosage: 50 UG, BID
     Route: 058
     Dates: end: 20140815
  2. BISOPROLOL [Concomitant]
     Active Substance: BISOPROLOL
     Indication: PRODUCT USED FOR UNKNOWN INDICATION
     Dosage: UNK
     Route: 065
  3. SANDOSTATIN LAR DEPOT [Suspect]
     Active Substance: OCTREOTIDE ACETATE
     Indication: GASTROINTESTINAL VASCULAR MALFORMATION
     Dosage: 10 MG, QMO
     Route: 030
     Dates: start: 20140820, end: 20161125

REACTIONS (23)
  - Necrosis [Unknown]
  - Contusion [Unknown]
  - Death [Fatal]
  - Somnolence [Unknown]
  - Blood pressure systolic decreased [Unknown]
  - Hypertension [Unknown]
  - Pain in extremity [Unknown]
  - Haemoglobin decreased [Unknown]
  - Bone disorder [Unknown]
  - Wound [Unknown]
  - Haemorrhage [Unknown]
  - Osteomyelitis [Unknown]
  - General physical health deterioration [Unknown]
  - Fall [Unknown]
  - Pain [Unknown]
  - Stoma complication [Unknown]
  - Constipation [Unknown]
  - Blood pressure systolic increased [Unknown]
  - Stoma site haemorrhage [Unknown]
  - Heart rate decreased [Unknown]
  - Product use issue [Unknown]
  - Hip fracture [Unknown]
  - Osteitis [Unknown]

NARRATIVE: CASE EVENT DATE: 20150331
